FAERS Safety Report 11420763 (Version 1)
Quarter: 2015Q3

REPORT INFORMATION
  Report Type: Spontaneous
  Country: GB (occurrence: GB)
  Receive Date: 20150826
  Receipt Date: 20150826
  Transmission Date: 20151125
  Serious: Yes (Other)
  Sender: FDA-Public Use
  Company Number: GB-ABBVIE-15K-167-1449626-00

PATIENT
  Age: 58 Year
  Sex: Male

DRUGS (1)
  1. HUMIRA [Suspect]
     Active Substance: ADALIMUMAB
     Indication: PSORIASIS
     Route: 065
     Dates: start: 20131224, end: 20150803

REACTIONS (2)
  - Bladder transitional cell carcinoma stage II [Recovered/Resolved]
  - Immunosuppression [Recovered/Resolved]

NARRATIVE: CASE EVENT DATE: 20150305
